FAERS Safety Report 15600413 (Version 2)
Quarter: 2018Q4

REPORT INFORMATION
  Report Type: Spontaneous
  Country: FR (occurrence: FR)
  Receive Date: 20181109
  Receipt Date: 20181203
  Transmission Date: 20190205
  Serious: Yes (Other)
  Sender: FDA-Public Use
  Company Number: FR-PFIZER INC-2018453904

PATIENT
  Age: 68 Year
  Sex: Male

DRUGS (7)
  1. SUTENT [Suspect]
     Active Substance: SUNITINIB MALATE
     Dosage: 25 MG, CYCLIC, 4/2
     Dates: start: 20090915, end: 20100413
  2. SUTENT [Suspect]
     Active Substance: SUNITINIB MALATE
     Dosage: UNK
     Dates: start: 20100611, end: 20130121
  3. SUTENT [Suspect]
     Active Substance: SUNITINIB MALATE
     Dosage: 37.5 MG, CYCLIC, 2/3
     Dates: start: 20141215, end: 20160315
  4. SUTENT [Suspect]
     Active Substance: SUNITINIB MALATE
     Indication: RENAL CANCER METASTATIC
     Dosage: 50 MG, CYCLIC, 4 WEEKS ON, 2 WEEKS OFF
     Dates: start: 20071025
  5. SUTENT [Suspect]
     Active Substance: SUNITINIB MALATE
     Dosage: 37.5 MG, UNK
     Dates: start: 20080304
  6. SUTENT [Suspect]
     Active Substance: SUNITINIB MALATE
     Dosage: 25 MG, CYCLIC, 4/2
     Dates: start: 20081020
  7. SUTENT [Suspect]
     Active Substance: SUNITINIB MALATE
     Dosage: UNK
     Dates: start: 20130528

REACTIONS (28)
  - Dry skin [Recovered/Resolved]
  - Yellow skin [Recovered/Resolved]
  - Epistaxis [Recovered/Resolved]
  - Asthenia [Recovered/Resolved]
  - Oral disorder [Recovered/Resolved]
  - Decreased appetite [Recovered/Resolved]
  - Second primary malignancy [Recovered/Resolved]
  - Onychoclasis [Recovered/Resolved]
  - Abdominal pain upper [Recovered/Resolved]
  - Dysgeusia [Recovered/Resolved]
  - Paronychia [Recovered/Resolved]
  - Hair colour changes [Recovered/Resolved]
  - Erythema [Recovered/Resolved]
  - Groin pain [Recovered/Resolved]
  - Pain [Recovered/Resolved]
  - Palmar-plantar erythrodysaesthesia syndrome [Recovered/Resolved]
  - Hypothyroidism [Recovered/Resolved]
  - Skin discolouration [Recovered/Resolved]
  - Gastrooesophageal reflux disease [Recovered/Resolved]
  - Prostate cancer [Recovered/Resolved]
  - Decreased appetite [Recovered/Resolved]
  - Weight decreased [Recovered/Resolved]
  - Hyperkeratosis [Recovered/Resolved]
  - Diverticulitis [Recovered/Resolved]
  - Dyspepsia [Recovered/Resolved]
  - Diarrhoea [Recovered/Resolved]
  - Hypertension [Recovered/Resolved]
  - Periorbital oedema [Recovered/Resolved]

NARRATIVE: CASE EVENT DATE: 20071203
